FAERS Safety Report 8797168 (Version 2)
Quarter: 2015Q1

REPORT INFORMATION
  Report Type: Report from Study
  Country: US (occurrence: US)
  Receive Date: 20120919
  Receipt Date: 20150227
  Transmission Date: 20150721
  Serious: Yes (Death)
  Sender: FDA-Public Use
  Company Number: US-ROCHE-1102315

PATIENT
  Sex: Female
  Weight: 72 kg

DRUGS (2)
  1. AVASTIN [Suspect]
     Active Substance: BEVACIZUMAB
     Indication: BREAST CANCER FEMALE
     Route: 065
     Dates: start: 20050726
  2. NAVELBINE [Concomitant]
     Active Substance: VINORELBINE TARTRATE

REACTIONS (2)
  - Off label use [Unknown]
  - Death [Fatal]
